FAERS Safety Report 7141131-5 (Version None)
Quarter: 2010Q4

REPORT INFORMATION
  Report Type: 
  Country: None (occurrence: None)
  Receive Date: 20101202
  Receipt Date: 20101202
  Transmission Date: 20110411
  Serious: Yes (Death)
  Sender: FDA-Public Use
  Company Number: None

PATIENT
  Age: 76 Year
  Sex: Male
  Weight: 68.0396 kg

DRUGS (1)
  1. AMIODARONE HCL [Suspect]
     Indication: HEART RATE
     Dosage: 2 TABLETS 2 TIMES A DAY
     Dates: start: 20100222

REACTIONS (1)
  - PULMONARY TOXICITY [None]
